FAERS Safety Report 5835052-5 (Version None)
Quarter: 2008Q3

REPORT INFORMATION
  Report Type: 
  Country: None (occurrence: None)
  Receive Date: 20080806
  Receipt Date: 20080728
  Transmission Date: 20090109
  Serious: Yes (Hospitalization, Other)
  Sender: FDA-Public Use
  Company Number: US-ROCHE-544259

PATIENT
  Sex: Female

DRUGS (4)
  1. PEG-INTERFERON A-2A (RO 25-8310) [Suspect]
     Dosage: SUSPENDED TWO WEEKS AFTER START.
     Route: 065
     Dates: start: 20071101
  2. PEG-INTERFERON A-2A (RO 25-8310) [Suspect]
     Dosage: FORM: PRE-FILLED SYRINGE
     Route: 065
     Dates: start: 20080113, end: 20080608
  3. RIBAVIRIN [Suspect]
     Dosage: SUSPENDED TWO WEEKS AFTER START.
     Route: 065
     Dates: start: 20071101
  4. RIBAVIRIN [Suspect]
     Route: 065
     Dates: start: 20080113, end: 20080608

REACTIONS (2)
  - CHEST PAIN [None]
  - NEOPLASM [None]
